FAERS Safety Report 12875566 (Version 2)
Quarter: 2017Q1

REPORT INFORMATION
  Report Type: Spontaneous
  Country: GB (occurrence: GB)
  Receive Date: 20161024
  Receipt Date: 20170118
  Transmission Date: 20170428
  Serious: Yes (Other)
  Sender: FDA-Public Use
  Company Number: GB-ACCORD-045040

PATIENT
  Age: 12 Year
  Sex: Female

DRUGS (5)
  1. OXYGEN. [Concomitant]
     Active Substance: OXYGEN
     Indication: GENERAL ANAESTHESIA
     Dosage: GASEOUS
  2. PROPOFOL. [Concomitant]
     Active Substance: PROPOFOL
     Indication: GENERAL ANAESTHESIA
  3. OMEPRAZOLE. [Interacting]
     Active Substance: OMEPRAZOLE
     Indication: PRODUCT USED FOR UNKNOWN INDICATION
  4. NITROUS OXIDE. [Interacting]
     Active Substance: NITROUS OXIDE
     Indication: GENERAL ANAESTHESIA
     Dosage: GASEOUS
  5. METHOTREXATE. [Suspect]
     Active Substance: METHOTREXATE
     Indication: ACUTE UNDIFFERENTIATED LEUKAEMIA
     Route: 037

REACTIONS (5)
  - Off label use [Unknown]
  - Drug interaction [Recovered/Resolved]
  - Leukoencephalopathy [Recovered/Resolved]
  - Disinhibition [Recovered/Resolved]
  - Brain oedema [Recovered/Resolved]
